FAERS Safety Report 13063967 (Version 1)
Quarter: 2016Q4

REPORT INFORMATION
  Report Type: Spontaneous
  Country: US (occurrence: US)
  Receive Date: 20161227
  Receipt Date: 20161227
  Transmission Date: 20170207
  Serious: No
  Sender: FDA-Public Use
  Company Number: US-PFIZER INC-2016597754

PATIENT
  Age: 52 Year
  Sex: Female
  Weight: 73 kg

DRUGS (1)
  1. GABAPENTIN. [Suspect]
     Active Substance: GABAPENTIN
     Indication: FIBROMYALGIA
     Dosage: 100 MG, 2X/DAY
     Route: 048
     Dates: end: 20161130

REACTIONS (2)
  - Drug ineffective for unapproved indication [Unknown]
  - Somnolence [Unknown]

NARRATIVE: CASE EVENT DATE: 20161118
